FAERS Safety Report 9136907 (Version 1)
Quarter: 2013Q1

REPORT INFORMATION
  Report Type: Spontaneous
  Country: US (occurrence: US)
  Receive Date: 20130304
  Receipt Date: 20130304
  Transmission Date: 20140127
  Serious: No
  Sender: FDA-Public Use
  Company Number: US-ABBOTT-12P-163-0928000-00

PATIENT
  Sex: Male
  Weight: 104.42 kg

DRUGS (4)
  1. ANDROGEL 1% [Suspect]
     Indication: BLOOD TESTOSTERONE DECREASED
     Dosage: 4 PUMPS ONCE DAILY
     Route: 061
     Dates: end: 201110
  2. ANDROGEL 1.62% [Suspect]
     Indication: BLOOD TESTOSTERONE DECREASED
     Dosage: 4 PUMPS ONCE DAILY
     Route: 061
     Dates: start: 201110
  3. LISINOPRIL [Concomitant]
     Indication: HYPERTENSION
     Route: 048
  4. TRILIPIX [Concomitant]
     Indication: HIGH DENSITY LIPOPROTEIN DECREASED

REACTIONS (9)
  - Libido decreased [Not Recovered/Not Resolved]
  - Drug ineffective [Not Recovered/Not Resolved]
  - Pain [Recovered/Resolved]
  - Influenza [Recovered/Resolved]
  - Sinusitis [Recovered/Resolved]
  - Upper-airway cough syndrome [Recovered/Resolved]
  - Bronchial irritation [Recovered/Resolved]
  - Rhinorrhoea [Recovered/Resolved]
  - Sinus headache [Recovered/Resolved]
